FAERS Safety Report 4895202-4 (Version None)
Quarter: 2006Q1

REPORT INFORMATION
  Report Type: 
  Country: None (occurrence: None)
  Receive Date: 20060130
  Receipt Date: 20060105
  Transmission Date: 20060701
  Serious: Yes (Congenital Anomaly, Other)
  Sender: FDA-Public Use
  Company Number: US-GILEAD-2006-0009077

PATIENT
  Sex: Female

DRUGS (4)
  1. VIREAD [Suspect]
     Route: 064
     Dates: start: 20041027, end: 20050413
  2. TRIZIVIR [Concomitant]
     Route: 064
     Dates: end: 20041027
  3. COMBIVIR [Concomitant]
     Route: 064
     Dates: start: 20041027, end: 20050413
  4. KALETRA [Concomitant]
     Route: 064
     Dates: start: 20041027, end: 20050413

REACTIONS (2)
  - DRUG EXPOSURE DURING PREGNANCY [None]
  - GALACTOSAEMIA [None]
